FAERS Safety Report 4836224-9 (Version None)
Quarter: 2005Q4

REPORT INFORMATION
  Report Type: 
  Country: None (occurrence: None)
  Receive Date: 20051118
  Receipt Date: 20051104
  Transmission Date: 20060501
  Serious: Yes (Death, Hospitalization)
  Sender: FDA-Public Use
  Company Number: 2005S1010887

PATIENT
  Age: 71 Year
  Sex: Male

DRUGS (9)
  1. CLOZAPINE [Suspect]
     Indication: SCHIZOPHRENIA
     Dosage: SEE IMAGE
     Route: 048
     Dates: start: 20031001, end: 20051001
  2. CLOZAPINE [Suspect]
     Indication: SCHIZOPHRENIA
     Dosage: SEE IMAGE
     Route: 048
     Dates: start: 20031001, end: 20051001
  3. BENZTROPINE MESYLATE [Concomitant]
  4. WARFARIN [Concomitant]
  5. ARIPIPRAZOLE [Concomitant]
  6. CLONIDINE [Concomitant]
  7. TEMAZEPAM [Concomitant]
  8. LISINOPRIL [Concomitant]
  9. FERROUS GLUCONATE [Concomitant]

REACTIONS (1)
  - DEATH [None]
